FAERS Safety Report 19359775 (Version 1)
Quarter: 2021Q2

REPORT INFORMATION
  Report Type: Spontaneous
  Country: US (occurrence: US)
  Receive Date: 20210601
  Receipt Date: 20210601
  Transmission Date: 20210717
  Serious: Yes (Other)
  Sender: FDA-Public Use
  Company Number: US-PFIZER INC-2021568251

PATIENT
  Age: 16 Year
  Sex: Male

DRUGS (1)
  1. ARGININE HCL [Suspect]
     Active Substance: ARGININE HYDROCHLORIDE
     Dosage: UNK
     Route: 042

REACTIONS (1)
  - Anaphylactic reaction [Unknown]
